FAERS Safety Report 14523390 (Version 1)
Quarter: 2018Q1

REPORT INFORMATION
  Report Type: Spontaneous
  Country: US (occurrence: US)
  Receive Date: 20180212
  Receipt Date: 20180212
  Transmission Date: 20180509
  Serious: No
  Sender: FDA-Public Use
  Company Number: US-GLAXOSMITHKLINE-US2018023193

PATIENT
  Age: 72 Year
  Sex: Male

DRUGS (6)
  1. MELOXICAM. [Concomitant]
     Active Substance: MELOXICAM
  2. BYSTOLIC [Concomitant]
     Active Substance: NEBIVOLOL HYDROCHLORIDE
  3. CHLORPROMAZINE. [Concomitant]
     Active Substance: CHLORPROMAZINE
  4. METFORMIN [Concomitant]
     Active Substance: METFORMIN HYDROCHLORIDE
  5. BREO ELLIPTA [Suspect]
     Active Substance: FLUTICASONE FUROATE\VILANTEROL TRIFENATATE
     Indication: ASTHMA
     Dosage: 1 PUFF(S), QD
     Route: 055
     Dates: start: 201704
  6. AMLODIPINE [Concomitant]
     Active Substance: AMLODIPINE BESYLATE

REACTIONS (2)
  - Oral candidiasis [Recovered/Resolved]
  - Oropharyngeal candidiasis [Recovered/Resolved]

NARRATIVE: CASE EVENT DATE: 201707
